FAERS Safety Report 23044956 (Version 2)
Quarter: 2024Q4

REPORT INFORMATION
  Report Type: Report from Study
  Country: DE (occurrence: DE)
  Receive Date: 20231009
  Receipt Date: 20241011
  Transmission Date: 20250114
  Serious: Yes (Hospitalization)
  Sender: SANDOZ
  Company Number: DE-002147023-NVSC2022DE235908

PATIENT
  Sex: Male

DRUGS (15)
  1. ADALIMUMAB [Suspect]
     Active Substance: ADALIMUMAB
     Indication: Product used for unknown indication
     Dosage: 40 MG
     Route: 065
     Dates: start: 202004, end: 202010
  2. FILGOTINIB [Suspect]
     Active Substance: FILGOTINIB
     Indication: Product used for unknown indication
     Dosage: 200 MG
     Route: 065
     Dates: start: 202101, end: 202308
  3. FILGOTINIB [Suspect]
     Active Substance: FILGOTINIB
     Dosage: 200 MG
     Route: 065
  4. FILGOTINIB [Suspect]
     Active Substance: FILGOTINIB
     Dosage: 200 MG
     Route: 065
  5. FILGOTINIB [Suspect]
     Active Substance: FILGOTINIB
     Dosage: 200 MG
     Route: 065
  6. METHOTREXATE [Suspect]
     Active Substance: METHOTREXATE
     Dosage: 10 MG
     Route: 065
  7. METHOTREXATE [Suspect]
     Active Substance: METHOTREXATE
     Dosage: 15 MG
     Route: 065
  8. METHOTREXATE [Suspect]
     Active Substance: METHOTREXATE
     Dosage: 15 MG
     Route: 065
  9. METHOTREXATE [Suspect]
     Active Substance: METHOTREXATE
     Dosage: 15 MG
     Route: 065
  10. METHOTREXATE [Suspect]
     Active Substance: METHOTREXATE
     Dosage: 25 MG
     Route: 065
  11. METHOTREXATE [Suspect]
     Active Substance: METHOTREXATE
     Dosage: 25 MG
     Route: 065
  12. METHOTREXATE [Suspect]
     Active Substance: METHOTREXATE
     Dosage: 25 MG
     Route: 065
  13. METHOTREXATE [Suspect]
     Active Substance: METHOTREXATE
     Dosage: 25 MG
     Route: 065
  14. METHOTREXATE [Suspect]
     Active Substance: METHOTREXATE
     Indication: Product used for unknown indication
     Dosage: 27.5 MG
     Route: 065
  15. ORENCIA [Suspect]
     Active Substance: ABATACEPT
     Indication: Product used for unknown indication
     Dosage: 125 MG
     Route: 065
     Dates: start: 201912, end: 202002

REACTIONS (9)
  - Pulmonary mass [Unknown]
  - Pulmonary mass [Unknown]
  - Osteoarthritis [Unknown]
  - Pulmonary mass [Not Recovered/Not Resolved]
  - Stress fracture [Unknown]
  - Gastritis [Unknown]
  - Gastrooesophageal reflux disease [Unknown]
  - Plantar fasciitis [Unknown]
  - Sinus tachycardia [Unknown]

NARRATIVE: CASE EVENT DATE: 20211026
